FAERS Safety Report 9114476 (Version 6)
Quarter: 2013Q3

REPORT INFORMATION
  Report Type: Spontaneous
  Country: US (occurrence: US)
  Receive Date: 20130208
  Receipt Date: 20130709
  Transmission Date: 20140515
  Serious: Yes (Hospitalization, Other)
  Sender: FDA-Public Use
  Company Number: US-009507513-1203USA00206

PATIENT
  Sex: Male

DRUGS (11)
  1. FOSAMAX [Suspect]
     Indication: OSTEOPOROSIS
     Dosage: 10 MG, QD
     Route: 048
     Dates: start: 19970711, end: 200201
  2. FOSAMAX [Suspect]
     Indication: OSTEOPENIA
     Dosage: 70 MG, UNK
     Route: 048
     Dates: start: 200201, end: 200506
  3. FOSAMAX [Suspect]
     Dosage: 70 MG, UNK
     Route: 048
     Dates: start: 200804, end: 2008
  4. FOSAMAX PLUS D [Suspect]
     Indication: OSTEOPOROSIS
     Dosage: 70 MG, UNK
     Route: 048
     Dates: start: 200506, end: 200804
  5. PREDNISONE [Concomitant]
     Indication: RHEUMATOID ARTHRITIS
     Dosage: 10-20 MG DAILY
     Dates: start: 1982
  6. METHOTREXATE [Concomitant]
     Indication: RHEUMATOID ARTHRITIS
     Dosage: UNK UNK, QW
     Dates: start: 1990
  7. CALCIUM (UNSPECIFIED) [Concomitant]
     Indication: OSTEOPENIA
     Dosage: 1200-1500 MG DAILY
  8. CALCIUM (UNSPECIFIED) [Concomitant]
     Indication: OSTEOPOROSIS
  9. VITAMIN D (UNSPECIFIED) [Concomitant]
     Indication: OSTEOPENIA
     Dosage: 600-800 UNITS DAILY
  10. VITAMIN D (UNSPECIFIED) [Concomitant]
     Indication: OSTEOPOROSIS
  11. ALENDRONATE SODIUM [Suspect]
     Dosage: 70 MG, UNK

REACTIONS (15)
  - Femur fracture [Unknown]
  - Hip arthroplasty [Unknown]
  - Joint arthroplasty [Unknown]
  - Myocardial infarction [Unknown]
  - Open reduction of fracture [Unknown]
  - Open reduction of fracture [Unknown]
  - Hypothyroidism [Unknown]
  - Inappropriate schedule of drug administration [Unknown]
  - Hypertension [Unknown]
  - Osteoporosis [Unknown]
  - Fall [Unknown]
  - Bone deformity [Not Recovered/Not Resolved]
  - Foot fracture [Unknown]
  - Fibula fracture [Unknown]
  - Pruritus [Unknown]
